FAERS Safety Report 7838916-6 (Version None)
Quarter: 2011Q4

REPORT INFORMATION
  Report Type: 
  Country: None (occurrence: None)
  Receive Date: 20111024
  Receipt Date: 20111014
  Transmission Date: 20120403
  Serious: Yes (Other)
  Sender: FDA-Public Use
  Company Number: US-US-EMD SERONO, INC.-7052233

PATIENT
  Sex: Female
  Weight: 116 kg

DRUGS (15)
  1. BENADRYL [Concomitant]
     Indication: PREMEDICATION
  2. MAGNESIUM [Concomitant]
  3. NAPROXEN [Concomitant]
  4. EPIPEN [Concomitant]
     Indication: DYSPNOEA
  5. MULTIVITAMIN [Concomitant]
  6. REBIF [Suspect]
     Indication: MULTIPLE SCLEROSIS
     Route: 058
     Dates: start: 20090306
  7. FISH OIL [Concomitant]
  8. OSTEO BI FLEX [Concomitant]
  9. VITAMIN D [Concomitant]
  10. AMLODIPINE [Concomitant]
  11. ALEVE [Concomitant]
     Indication: PREMEDICATION
  12. FOLIC ACID [Concomitant]
  13. SELENIUM [Concomitant]
  14. ASCORBIC ACID [Concomitant]
  15. METOPROLOL TARTRATE [Concomitant]

REACTIONS (8)
  - HYPERSENSITIVITY [None]
  - INJECTION SITE ERYTHEMA [None]
  - INJECTION SITE INDURATION [None]
  - DRY MOUTH [None]
  - ASTHMA [None]
  - PULMONARY CONGESTION [None]
  - BLOOD PRESSURE INCREASED [None]
  - INSOMNIA [None]
